FAERS Safety Report 10052355 (Version 1)
Quarter: 2014Q2

REPORT INFORMATION
  Report Type: Spontaneous
  Country: NO (occurrence: NO)
  Receive Date: 20140402
  Receipt Date: 20140402
  Transmission Date: 20141212
  Serious: Yes (Hospitalization)
  Sender: FDA-Public Use
  Company Number: NO-ASTRAZENECA-2014SE20923

PATIENT
  Age: 41 Year
  Sex: Male

DRUGS (3)
  1. MERONEM [Suspect]
     Indication: PNEUMONIA
     Route: 042
     Dates: start: 20140223, end: 20140306
  2. TAZOCIN [Suspect]
     Indication: PNEUMONIA
     Dosage: 1 DF, THREE TIMES A DAY, 2 G PIPERACILLIN AND 0,25 G TAZOBACTAM
     Route: 042
     Dates: start: 20140223, end: 20140224
  3. AMOXICILLIN [Suspect]
     Indication: PNEUMONIA
     Route: 065
     Dates: start: 20140306, end: 20140313

REACTIONS (1)
  - Bone marrow failure [Recovered/Resolved with Sequelae]
